FAERS Safety Report 11205947 (Version 1)
Quarter: 2015Q2

REPORT INFORMATION
  Report Type: Spontaneous
  Country: US (occurrence: None)
  Receive Date: 20150618
  Receipt Date: 20150618
  Transmission Date: 20150821
  Serious: No
  Sender: FDA-Public Use
  Company Number: None

PATIENT
  Age: 57 Year
  Sex: Female
  Weight: 83.92 kg

DRUGS (7)
  1. BLISTEX IVAREST POISON IVY ITCH [Suspect]
     Active Substance: PRAMOXINE HYDROCHLORIDE\ZINC ACETATE
     Indication: DERMATITIS CONTACT
     Dosage: 2.0% DIPHENHYDRAMINE LAYER YOU CANNOT SEE THROUGH 4 X DAILY ON SKIN
     Route: 061
     Dates: start: 20150526, end: 20150528
  2. LIPITOR [Concomitant]
     Active Substance: ATORVASTATIN CALCIUM
  3. PREDNISONE. [Concomitant]
     Active Substance: PREDNISONE
  4. PAXIL [Concomitant]
     Active Substance: PAROXETINE HYDROCHLORIDE
  5. VITAMIN C [Concomitant]
     Active Substance: ASCORBIC ACID
  6. VITAMIN E [Concomitant]
     Active Substance: .ALPHA.-TOCOPHEROL
  7. VITAMIN D [Concomitant]
     Active Substance: CHOLECALCIFEROL

REACTIONS (2)
  - Condition aggravated [None]
  - Dermatitis contact [None]

NARRATIVE: CASE EVENT DATE: 20150609
